FAERS Safety Report 6272333-8 (Version None)
Quarter: 2009Q3

REPORT INFORMATION
  Report Type: 
  Country: None (occurrence: None)
  Receive Date: 20090717
  Receipt Date: 20090708
  Transmission Date: 20100115
  Serious: Yes (Hospitalization, Disabling, Other)
  Sender: FDA-Public Use
  Company Number: US-ROCHE-401080

PATIENT
  Sex: Male
  Weight: 78.5 kg

DRUGS (3)
  1. ACCUTANE [Suspect]
     Route: 048
     Dates: start: 19950524, end: 19951001
  2. ACCUTANE [Suspect]
     Route: 048
     Dates: start: 19960826, end: 19961101
  3. CEPHALEXIN [Concomitant]
     Route: 048
     Dates: start: 19950823

REACTIONS (15)
  - ALOPECIA [None]
  - COLITIS [None]
  - COLITIS ULCERATIVE [None]
  - DEPRESSION [None]
  - DRY SKIN [None]
  - EPISTAXIS [None]
  - FATIGUE [None]
  - GASTROINTESTINAL DISORDER [None]
  - INFLAMMATORY BOWEL DISEASE [None]
  - INTESTINAL HAEMORRHAGE [None]
  - IRRITABLE BOWEL SYNDROME [None]
  - LIP DRY [None]
  - MULTI-ORGAN DISORDER [None]
  - OESOPHAGITIS [None]
  - RECTAL HAEMORRHAGE [None]
